FAERS Safety Report 9423661 (Version 1)
Quarter: 2013Q3

REPORT INFORMATION
  Report Type: Spontaneous
  Country: US (occurrence: US)
  Receive Date: 20130726
  Receipt Date: 20130726
  Transmission Date: 20140515
  Serious: No
  Sender: FDA-Public Use
  Company Number: US-TEVA-420052USA

PATIENT
  Age: 39 Year
  Sex: Female
  Weight: 75.82 kg

DRUGS (2)
  1. PARAGARD 380A [Suspect]
     Indication: CONTRACEPTION
     Dates: start: 20130423, end: 20130717
  2. LISINOPRIL [Concomitant]
     Indication: HYPERTENSION

REACTIONS (1)
  - Device expulsion [Recovered/Resolved]
